FAERS Safety Report 24976494 (Version 1)
Quarter: 2025Q1

REPORT INFORMATION
  Report Type: Spontaneous
  Country: US (occurrence: US)
  Receive Date: 20250217
  Receipt Date: 20250217
  Transmission Date: 20250409
  Serious: No
  Sender: MYLAN
  Company Number: US-MYLANLABS-2025M1010248

PATIENT
  Sex: Female
  Weight: 117.93 kg

DRUGS (2)
  1. LEVOTHYROXINE SODIUM [Suspect]
     Active Substance: LEVOTHYROXINE SODIUM
     Indication: Autoimmune thyroiditis
     Dosage: UNK, QD (THE MORNING ON AN EMPTY STOMACH)
     Route: 065
  2. LEVOTHYROXINE SODIUM [Suspect]
     Active Substance: LEVOTHYROXINE SODIUM
     Indication: Hypothyroidism

REACTIONS (7)
  - Weight increased [Unknown]
  - Somnolence [Unknown]
  - Gluten sensitivity [Not Recovered/Not Resolved]
  - Drug hypersensitivity [Not Recovered/Not Resolved]
  - Weight decreased [Recovering/Resolving]
  - Fatigue [Not Recovered/Not Resolved]
  - Drug ineffective [Unknown]
